FAERS Safety Report 15333103 (Version 1)
Quarter: 2018Q3

REPORT INFORMATION
  Report Type: Spontaneous
  Country: CN (occurrence: CN)
  Receive Date: 20180830
  Receipt Date: 20180830
  Transmission Date: 20181010
  Serious: Yes (Life-Threatening, Hospitalization)
  Sender: FDA-Public Use
  Company Number: CN-SCIEGEN PHARMACEUTICALS INC-2018SCILIT00583

PATIENT
  Age: 42 Year
  Sex: Female

DRUGS (1)
  1. METFORMIN HYDROCHLORIDE TABLETS, USP [Suspect]
     Active Substance: METFORMIN HYDROCHLORIDE
     Indication: PRODUCT USED FOR UNKNOWN INDICATION
     Dosage: INGESTED 100 TABLETS (500 MG EACH)
     Route: 065

REACTIONS (6)
  - Lactic acidosis [Recovering/Resolving]
  - Overdose [Recovering/Resolving]
  - Cardiac arrest [Recovering/Resolving]
  - Toxicity to various agents [Recovering/Resolving]
  - Suicide attempt [Unknown]
  - Respiratory arrest [Recovering/Resolving]
